FAERS Safety Report 24208316 (Version 3)
Quarter: 2025Q2

REPORT INFORMATION
  Report Type: Spontaneous
  Country: SE (occurrence: SE)
  Receive Date: 20240814
  Receipt Date: 20250630
  Transmission Date: 20250716
  Serious: Yes (Hospitalization, Other)
  Sender: Kenvue
  Company Number: None

PATIENT

DRUGS (3)
  1. LOPERAMIDE HYDROCHLORIDE [Suspect]
     Active Substance: LOPERAMIDE HYDROCHLORIDE
     Indication: Product used for unknown indication
     Route: 065
     Dates: start: 20240727
  2. PROMETHAZINE HYDROCHLORIDE\THIOUREA [Suspect]
     Active Substance: PROMETHAZINE HYDROCHLORIDE\THIOUREA
     Indication: Product used for unknown indication
     Route: 065
     Dates: start: 20240727
  3. MECLIZINE MONOHYDROCHLORIDE [Suspect]
     Active Substance: MECLIZINE MONOHYDROCHLORIDE
     Indication: Product used for unknown indication
     Route: 065
     Dates: start: 20240727

REACTIONS (4)
  - Suicide attempt [Recovering/Resolving]
  - Chest discomfort [Recovering/Resolving]
  - Toxicity to various agents [Recovering/Resolving]
  - Intentional overdose [Recovering/Resolving]

NARRATIVE: CASE EVENT DATE: 20240727
